FAERS Safety Report 5451402-6 (Version None)
Quarter: 2007Q3

REPORT INFORMATION
  Report Type: 
  Country: None (occurrence: None)
  Receive Date: 20070913
  Receipt Date: 20070907
  Transmission Date: 20080115
  Serious: Yes (Hospitalization)
  Sender: FDA-Public Use
  Company Number: A0679705A

PATIENT
  Age: 27 Year
  Sex: Male

DRUGS (5)
  1. WELLBUTRIN [Suspect]
     Indication: DEPRESSION
     Dosage: 150MG PER DAY
     Route: 048
     Dates: start: 20050101
  2. PAXIL [Suspect]
     Indication: DEPRESSION
     Route: 048
     Dates: start: 20050101
  3. PAROXETINE [Suspect]
     Indication: DEPRESSION
     Route: 048
  4. PROZAC [Suspect]
  5. ANTABUSE [Concomitant]

REACTIONS (11)
  - ALCOHOL PROBLEM [None]
  - ANXIETY [None]
  - DISTURBANCE IN ATTENTION [None]
  - HYPERTENSION [None]
  - IMPRISONMENT [None]
  - INSOMNIA [None]
  - IRRITABILITY [None]
  - MEMORY IMPAIRMENT [None]
  - MENTAL DISORDER [None]
  - PARANOIA [None]
  - THINKING ABNORMAL [None]
